FAERS Safety Report 7315837-9 (Version None)
Quarter: 2011Q1

REPORT INFORMATION
  Report Type: 
  Country: None (occurrence: None)
  Receive Date: 20110225
  Receipt Date: 20110217
  Transmission Date: 20110831
  Serious: Yes (Other)
  Sender: FDA-Public Use
  Company Number: GB-BAYER-2011-016993

PATIENT
  Sex: Female

DRUGS (1)
  1. BETAFERON [Suspect]
     Indication: MULTIPLE SCLEROSIS
     Dosage: UNK
     Route: 058
     Dates: start: 19980101

REACTIONS (4)
  - INFLUENZA LIKE ILLNESS [None]
  - BONE SWELLING [None]
  - LYMPHADENOPATHY [None]
  - SKIN REACTION [None]
